FAERS Safety Report 16928836 (Version 1)
Quarter: 2019Q4

REPORT INFORMATION
  Report Type: Spontaneous
  Country: IT (occurrence: IT)
  Receive Date: 20191017
  Receipt Date: 20191017
  Transmission Date: 20200122
  Serious: Yes (Other)
  Sender: FDA-Public Use
  Company Number: IT-TEVA-2019-IT-1122276

PATIENT
  Age: 73 Year
  Sex: Female
  Weight: 50 kg

DRUGS (5)
  1. FLUOROURACILE TEVA [Suspect]
     Active Substance: FLUOROURACIL
     Indication: COLORECTAL CANCER
     Dosage: 2503 MG PER CYCLICAL
     Route: 042
     Dates: start: 20190228, end: 20190828
  2. FLUOROURACILE TEVA [Suspect]
     Active Substance: FLUOROURACIL
     Indication: COLORECTAL CANCER
     Dosage: 417.2 MG PER CYCLICAL
     Route: 040
     Dates: start: 20190228, end: 20190828
  3. RANITIDINE HYDROCHLORIDE. [Concomitant]
     Active Substance: RANITIDINE HYDROCHLORIDE
  4. DEXAMETHASONE. [Concomitant]
     Active Substance: DEXAMETHASONE
  5. OXALIPLATINO SUN PHARMACEUTICAL INDUSTRIES EUROPE [Suspect]
     Active Substance: OXALIPLATIN
     Indication: COLORECTAL CANCER
     Dosage: 88.66 MG PER CYCLICAL
     Route: 042
     Dates: start: 20190228, end: 20190828

REACTIONS (2)
  - Leukopenia [Recovering/Resolving]
  - Neutropenia [Recovering/Resolving]

NARRATIVE: CASE EVENT DATE: 20190927
